FAERS Safety Report 21430256 (Version 1)
Quarter: 2022Q4

REPORT INFORMATION
  Report Type: Spontaneous
  Country: US (occurrence: US)
  Receive Date: 20221009
  Receipt Date: 20221009
  Transmission Date: 20230112
  Serious: No
  Sender: FDA-Public Use
  Company Number: US-ELI_LILLY_AND_COMPANY-US202210003568

PATIENT
  Age: 60 Year
  Sex: Female

DRUGS (1)
  1. TALTZ [Suspect]
     Active Substance: IXEKIZUMAB
     Indication: Product used for unknown indication
     Dosage: 80 MG, UNKNOWN
     Route: 065
     Dates: start: 202205

REACTIONS (8)
  - Eye infection [Unknown]
  - Vulvovaginal pruritus [Unknown]
  - Chills [Unknown]
  - Fatigue [Unknown]
  - Cough [Unknown]
  - Influenza like illness [Unknown]
  - Nausea [Unknown]
  - Injection site reaction [Unknown]

NARRATIVE: CASE EVENT DATE: 20221005
